FAERS Safety Report 6177466-2 (Version None)
Quarter: 2009Q2

REPORT INFORMATION
  Report Type: 
  Country: None (occurrence: None)
  Receive Date: 20090501
  Receipt Date: 20090501
  Transmission Date: 20091009
  Serious: No
  Sender: FDA-Public Use
  Company Number: None

PATIENT
  Age: 57 Year
  Sex: Female
  Weight: 74 kg

DRUGS (18)
  1. PROPOFOL [Suspect]
     Indication: SEDATION
     Dosage: VARIED IV CI
     Route: 042
     Dates: start: 20090123, end: 20090127
  2. PROPOFOL [Suspect]
     Indication: SEDATION
     Dosage: VARIED IV CI
     Route: 042
     Dates: start: 20090130, end: 20090201
  3. RANITIDINE [Concomitant]
  4. SENNA [Concomitant]
  5. INSULIN [Concomitant]
  6. LACTOBACILLUS [Concomitant]
  7. METRONIDAZOLE [Concomitant]
  8. CEFTRIAXONE [Concomitant]
  9. SIMVASTATIN [Concomitant]
  10. DOCUSATE [Concomitant]
  11. NIMODIPINE [Concomitant]
  12. DEXAMETHASONE 4MG TAB [Concomitant]
  13. HEPARIN [Concomitant]
  14. METOCLOPROMIDE [Concomitant]
  15. BUSPIRONE HCL [Concomitant]
  16. KEPPRA [Concomitant]
  17. FLUDROCORTISONE [Concomitant]
  18. SODIUM CHLORIDE [Concomitant]

REACTIONS (2)
  - HYPONATRAEMIA [None]
  - PANCREATITIS [None]
